FAERS Safety Report 5992986-9 (Version None)
Quarter: 2008Q4

REPORT INFORMATION
  Report Type: 
  Country: None (occurrence: None)
  Receive Date: 20081210
  Receipt Date: 20081210
  Transmission Date: 20090506
  Serious: Yes (Hospitalization)
  Sender: FDA-Public Use
  Company Number: None

PATIENT
  Sex: Male
  Weight: 61.7 kg

DRUGS (4)
  1. TAXOL [Suspect]
     Dosage: 492 MG
     Dates: end: 20081207
  2. ADALAT [Concomitant]
  3. FLOMAX [Concomitant]
  4. PROSCAR [Concomitant]

REACTIONS (8)
  - ASTHENIA [None]
  - CONFUSIONAL STATE [None]
  - HAEMOGLOBIN DECREASED [None]
  - PROSTATOMEGALY [None]
  - PYELONEPHRITIS [None]
  - PYREXIA [None]
  - RENAL CYST [None]
  - URINARY TRACT INFECTION [None]
